FAERS Safety Report 17053252 (Version 1)
Quarter: 2019Q4

REPORT INFORMATION
  Report Type: Spontaneous
  Country: US (occurrence: US)
  Receive Date: 20191120
  Receipt Date: 20191120
  Transmission Date: 20200122
  Serious: No
  Sender: FDA-Public Use
  Company Number: US-NOVOPROD-625599

PATIENT
  Age: 54 Year
  Sex: Female

DRUGS (1)
  1. NOVOLOG MIX 70/30 [Suspect]
     Active Substance: INSULIN ASPART
     Indication: TYPE 1 DIABETES MELLITUS
     Dosage: 10 IU, QD
     Route: 058
     Dates: start: 201803

REACTIONS (4)
  - Blood glucose fluctuation [Unknown]
  - Blood glucose increased [Unknown]
  - Hypertension [Unknown]
  - Insomnia [Unknown]
